FAERS Safety Report 7016874-4 (Version None)
Quarter: 2010Q3

REPORT INFORMATION
  Report Type: 
  Country: None (occurrence: None)
  Receive Date: 20100927
  Receipt Date: 20100920
  Transmission Date: 20110219
  Serious: Yes (Hospitalization)
  Sender: FDA-Public Use
  Company Number: US-AMGEN-KDC439707

PATIENT
  Weight: 2.92 kg

DRUGS (21)
  1. ENBREL [Suspect]
     Route: 064
     Dates: start: 20080824, end: 20080928
  2. PLAQUENIL [Concomitant]
     Route: 064
     Dates: start: 20080824, end: 20090527
  3. PRENATAL VITAMINS [Concomitant]
     Route: 064
     Dates: start: 20080930, end: 20090527
  4. LOVAZA [Concomitant]
     Route: 064
     Dates: start: 20080930, end: 20090527
  5. FATTY ACID [Concomitant]
     Route: 064
     Dates: start: 20080930, end: 20090527
  6. CALCIUM [Concomitant]
     Route: 064
     Dates: start: 20080824, end: 20080930
  7. VITAMIN D [Concomitant]
     Route: 064
     Dates: start: 20080824, end: 20090123
  8. METFORMIN HYDROCHLORIDE [Concomitant]
     Route: 064
     Dates: start: 20080824, end: 20081028
  9. ALLEGRA [Concomitant]
     Route: 064
     Dates: start: 20080824, end: 20080930
  10. MOMETASONE FUROATE [Concomitant]
     Route: 064
     Dates: start: 20080824, end: 20081020
  11. RHINOCORT [Concomitant]
     Route: 064
     Dates: start: 20081021, end: 20081107
  12. IBUPROFEN [Concomitant]
     Route: 064
     Dates: start: 20080824, end: 20080930
  13. METOPROLOL TARTRATE [Concomitant]
     Route: 064
     Dates: start: 20081106, end: 20081201
  14. TYLENOL [Concomitant]
     Route: 064
     Dates: start: 20081013, end: 20090527
  15. SYNTHROID [Concomitant]
     Route: 064
     Dates: start: 20081202, end: 20090527
  16. INFLUENZA VACCINE [Concomitant]
     Route: 064
     Dates: start: 20081020, end: 20081020
  17. UNSPECIFIED ANTI-INFECTIVE AGENT [Concomitant]
     Route: 064
     Dates: start: 20090401, end: 20090405
  18. MACROBID [Concomitant]
     Route: 064
     Dates: start: 20090409, end: 20090414
  19. BENADRYL [Concomitant]
     Route: 064
     Dates: start: 20090308, end: 20090315
  20. TUMS [Concomitant]
     Route: 064
     Dates: start: 20090327, end: 20090527
  21. CLINDAMYCIN [Concomitant]
     Route: 064
     Dates: start: 20090424, end: 20090430

REACTIONS (4)
  - FEBRILE INFECTION [None]
  - GASTROOESOPHAGEAL REFLUX DISEASE [None]
  - MYOSITIS [None]
  - SEPSIS NEONATAL [None]
